FAERS Safety Report 10044215 (Version 1)
Quarter: 2014Q1

REPORT INFORMATION
  Report Type: Spontaneous
  Country: US (occurrence: None)
  Receive Date: 20140327
  Receipt Date: 20140327
  Transmission Date: 20141002
  Serious: Yes (Other)
  Sender: FDA-Public Use
  Company Number: None

PATIENT
  Age: 65 Year
  Sex: Male
  Weight: 104.5 kg

DRUGS (1)
  1. CANAGLIFLOZIN [Suspect]
     Indication: DIABETES MELLITUS
     Dosage: ~01/06/2014 THRU 02/06/2014
     Route: 048
     Dates: start: 20140106, end: 20140206

REACTIONS (4)
  - Rash erythematous [None]
  - Pruritus [None]
  - Burning sensation [None]
  - Urticaria [None]
